FAERS Safety Report 26086978 (Version 1)
Quarter: 2025Q4

REPORT INFORMATION
  Report Type: Report from Study
  Country: CN (occurrence: CN)
  Receive Date: 20251125
  Receipt Date: 20251125
  Transmission Date: 20260117
  Serious: Yes (Other)
  Sender: RANBAXY
  Company Number: CN-SUN PHARMACEUTICAL INDUSTRIES INC-2025R1-537777

PATIENT
  Age: 12 Year
  Sex: Male
  Weight: 60 kg

DRUGS (1)
  1. PREDNISONE [Suspect]
     Active Substance: PREDNISONE
     Indication: Immune-mediated renal disorder
     Dosage: 26.77 GRAM
     Route: 048

REACTIONS (1)
  - Osteonecrosis [Unknown]
